FAERS Safety Report 10213291 (Version 2)
Quarter: 2016Q4

REPORT INFORMATION
  Report Type: Report from Study
  Country: FR (occurrence: FR)
  Receive Date: 20140603
  Receipt Date: 20161024
  Transmission Date: 20170206
  Serious: Yes (Hospitalization)
  Sender: FDA-Public Use
  Company Number: FR-ROCHE-1405486

PATIENT
  Age: 36 Year
  Sex: Female
  Weight: 59 kg

DRUGS (2)
  1. PACLITAXEL. [Suspect]
     Active Substance: PACLITAXEL
     Indication: BREAST CANCER
     Dosage: CUMULATIVE DOSE: 1242MG, DATE OF LAST DOSE OF 132MG PRIOR TO SAE: 06/MAY/2014
     Route: 065
     Dates: start: 20140212
  2. BEVACIZUMAB [Suspect]
     Active Substance: BEVACIZUMAB
     Indication: BREAST CANCER
     Dosage: CUMULATIVE DOSE: 3450MG, DATE OF LAST DOSE OF 575MG PRIOR TO SAE: 06/MAY/2014.
     Route: 065
     Dates: start: 20140212

REACTIONS (1)
  - Renal colic [Recovered/Resolved]

NARRATIVE: CASE EVENT DATE: 20140508
